FAERS Safety Report 6279986-9 (Version None)
Quarter: 2009Q3

REPORT INFORMATION
  Report Type: 
  Country: None (occurrence: None)
  Receive Date: 20090723
  Receipt Date: 20090424
  Transmission Date: 20100115
  Serious: No
  Sender: FDA-Public Use
  Company Number: US-AMGEN-KDL344489

PATIENT
  Sex: Female
  Weight: 91.7 kg

DRUGS (8)
  1. PROCRIT [Suspect]
     Indication: RENAL FAILURE CHRONIC
     Dates: start: 20050101
  2. LANTUS [Concomitant]
     Dates: start: 19990101
  3. HUMALOG [Concomitant]
     Dates: start: 19890101
  4. TRICOR [Concomitant]
  5. NEXIUM [Concomitant]
  6. CRESTOR [Concomitant]
  7. NORVASC [Concomitant]
  8. LASIX [Concomitant]

REACTIONS (1)
  - HAEMOGLOBIN DECREASED [None]
